FAERS Safety Report 21191327 (Version 17)
Quarter: 2024Q4

REPORT INFORMATION
  Report Type: Report from Study
  Country: US (occurrence: US)
  Receive Date: 20220809
  Receipt Date: 20241007
  Transmission Date: 20250114
  Serious: Yes (Hospitalization, Other)
  Sender: NOVARTIS
  Company Number: US-NOVARTISPH-NVSC2022US179626

PATIENT
  Age: 40 Year
  Sex: Female

DRUGS (2)
  1. KESIMPTA [Suspect]
     Active Substance: OFATUMUMAB
     Indication: Multiple sclerosis
     Dosage: 20 MG, QW
     Route: 058
     Dates: start: 20220804
  2. KESIMPTA [Suspect]
     Active Substance: OFATUMUMAB
     Dosage: 20 MG, QMO
     Route: 058

REACTIONS (13)
  - Radial nerve palsy [Unknown]
  - Seizure [Unknown]
  - Multiple sclerosis pseudo relapse [Unknown]
  - Blindness unilateral [Unknown]
  - Pneumonia [Not Recovered/Not Resolved]
  - Hemihypoaesthesia [Unknown]
  - Psychogenic seizure [Unknown]
  - Insomnia [Unknown]
  - COVID-19 [Unknown]
  - Influenza like illness [Recovered/Resolved]
  - Nasopharyngitis [Unknown]
  - Influenza [Unknown]
  - Therapeutic response unexpected [Unknown]

NARRATIVE: CASE EVENT DATE: 20220804
